FAERS Safety Report 22604932 (Version 2)
Quarter: 2023Q2

REPORT INFORMATION
  Report Type: Report from Study
  Country: US (occurrence: US)
  Receive Date: 20230615
  Receipt Date: 20230626
  Transmission Date: 20230721
  Serious: Yes (Hospitalization, Other)
  Sender: FDA-Public Use
  Company Number: US-TEVA-2023-US-2895905

PATIENT

DRUGS (3)
  1. PREDNISONE [Suspect]
     Active Substance: PREDNISONE
     Indication: Colitis ulcerative
     Dosage: 30 MILLIGRAM DAILY; ONCE A DAY
     Route: 065
  2. VEDOLIZUMAB [Suspect]
     Active Substance: VEDOLIZUMAB
     Indication: Colitis ulcerative
     Dosage: 300MG EVERY 8WEEKS
     Route: 042
  3. TOFACITINIB [Suspect]
     Active Substance: TOFACITINIB
     Indication: Colitis ulcerative
     Dosage: 20 MILLIGRAM DAILY; 10MG TWO TIMES A DAY , ADDITIONAL INFO: ACTION TAKEN: DOSE REDUCED TO 5MG TWICE
     Route: 048

REACTIONS (2)
  - Arthritis bacterial [Unknown]
  - Deep vein thrombosis [Unknown]
